FAERS Safety Report 7656489-8 (Version None)
Quarter: 2011Q3

REPORT INFORMATION
  Report Type: 
  Country: None (occurrence: None)
  Receive Date: 20110804
  Receipt Date: 20100805
  Transmission Date: 20111222
  Serious: No
  Sender: FDA-Public Use
  Company Number: US-BAUSCH-2010BL004298

PATIENT
  Age: 53 Year
  Sex: Male

DRUGS (3)
  1. MULTI-VITAMINS [Concomitant]
  2. CALCIUM ACETATE [Concomitant]
  3. OPCON-A [Suspect]
     Indication: EYE ALLERGY
     Route: 047
     Dates: start: 20100804, end: 20100805

REACTIONS (1)
  - INSTILLATION SITE PAIN [None]
